FAERS Safety Report 12723640 (Version 1)
Quarter: 2016Q3

REPORT INFORMATION
  Report Type: Spontaneous
  Country: GB (occurrence: GB)
  Receive Date: 20160908
  Receipt Date: 20160908
  Transmission Date: 20161109
  Serious: Yes (Congenital Anomaly, Other)
  Sender: FDA-Public Use
  Company Number: GB-AUROBINDO-AUR-APL-2016-10975

PATIENT

DRUGS (2)
  1. SERTRALINE 50MG [Suspect]
     Active Substance: SERTRALINE HYDROCHLORIDE
     Indication: DEPRESSION
     Dosage: LONG TERM PRESCRIPTION.
     Route: 064
     Dates: start: 2013
  2. OLANZAPINE 10MG [Suspect]
     Active Substance: OLANZAPINE
     Indication: MENTAL DISORDER
     Dosage: 10 MG, (LONG TERM PRESCRIPTION.)
     Route: 064
     Dates: start: 2003

REACTIONS (4)
  - Intestinal atresia [Unknown]
  - Spine malformation [Unknown]
  - Foetal exposure during pregnancy [Unknown]
  - Limb malformation [Unknown]

NARRATIVE: CASE EVENT DATE: 201606
